FAERS Safety Report 15223451 (Version 1)
Quarter: 2018Q3

REPORT INFORMATION
  Report Type: Spontaneous
  Country: US (occurrence: US)
  Receive Date: 20180731
  Receipt Date: 20180731
  Transmission Date: 20181010
  Serious: No
  Sender: FDA-Public Use
  Company Number: US-ENDO PHARMACEUTICALS INC-2017-004060

PATIENT
  Sex: Male
  Weight: 81.63 kg

DRUGS (3)
  1. LISINOPRIL. [Concomitant]
     Active Substance: LISINOPRIL
     Indication: HYPERTENSION
  2. TESTOPEL [Suspect]
     Active Substance: TESTOSTERONE
     Indication: BLOOD TESTOSTERONE DECREASED
     Dosage: 6 PELLETS INSERTED, RIGHT HIP
     Route: 065
     Dates: start: 2014
  3. TESTOPEL [Suspect]
     Active Substance: TESTOSTERONE
     Dosage: 750 MG, 10 PELLETS
     Route: 065
     Dates: start: 20150603, end: 20150603

REACTIONS (4)
  - Medication residue present [Unknown]
  - Implant site mass [Unknown]
  - Drug ineffective [Unknown]
  - Prescribed overdose [Recovered/Resolved]

NARRATIVE: CASE EVENT DATE: 2015
